FAERS Safety Report 18489244 (Version 1)
Quarter: 2020Q4

REPORT INFORMATION
  Report Type: Spontaneous
  Country: US (occurrence: US)
  Receive Date: 20201106
  Receipt Date: 20201106
  Transmission Date: 20210114
  Serious: No
  Sender: FDA-Public Use
  Company Number: None

PATIENT

DRUGS (1)
  1. ENFORTUMAB VEDOTIN [Suspect]
     Active Substance: ENFORTUMAB VEDOTIN

REACTIONS (6)
  - SJS-TEN overlap [None]
  - Skin toxicity [None]
  - Pancreatitis [None]
  - Thrombocytopenia [None]
  - Therapeutic product effect incomplete [None]
  - Disease progression [None]
